FAERS Safety Report 8974258 (Version 2)
Quarter: 2013Q4

REPORT INFORMATION
  Report Type: Spontaneous
  Country: GB (occurrence: None)
  Receive Date: 20121214
  Receipt Date: 20131001
  Transmission Date: 20140711
  Serious: Yes (Other)
  Sender: FDA-Public Use
  Company Number: GER/UKI/12/0026975

PATIENT
  Age: 25 Year
  Sex: Female
  Weight: 77 kg

DRUGS (7)
  1. CIPROFLOXACIN [Suspect]
     Indication: PRODUCT USED FOR UNKNOWN INDICATION
  2. AMOXICILLIN (AMOXICILLIN) [Concomitant]
     Indication: PRODUCT USED FOR UNKNOWN INDICATION
  3. BECLOMETASONE DIPROPIONATE [Concomitant]
     Indication: PRODUCT USED FOR UNKNOWN INDICATION
     Dates: start: 20121114
  4. NITROFURANTOIN [Concomitant]
     Indication: PRODUCT USED FOR UNKNOWN INDICATION
     Dates: start: 20121122
  5. PREDNISOLONE (PREDNISOLONE) [Concomitant]
     Indication: PRODUCT USED FOR UNKNOWN INDICATION
     Dates: start: 20120131
  6. SALBUTAMOL (SALBUTAMOL) [Concomitant]
     Indication: PRODUCT USED FOR UNKNOWN INDICATION
     Dates: start: 20120131
  7. TRIMETHOPRIM (TRIMETHOPRIM) [Concomitant]
     Indication: PRODUCT USED FOR UNKNOWN INDICATION
     Dates: start: 20121115, end: 20121122

REACTIONS (4)
  - Palpitations [None]
  - Paraesthesia [None]
  - Colour blindness acquired [None]
  - Muscular weakness [None]
